FAERS Safety Report 6383650-5 (Version None)
Quarter: 2009Q4

REPORT INFORMATION
  Report Type: 
  Country: None (occurrence: None)
  Receive Date: 20091001
  Receipt Date: 20090922
  Transmission Date: 20100525
  Serious: Yes (Other)
  Sender: FDA-Public Use
  Company Number: US-JNJFOC-20090800324

PATIENT
  Sex: Male
  Weight: 104.33 kg

DRUGS (1)
  1. REMICADE [Suspect]
     Indication: CROHN'S DISEASE
     Dosage: RECEIVED 6 DOSES
     Route: 042
     Dates: start: 20060124, end: 20060501

REACTIONS (4)
  - DEMYELINATION [None]
  - MUSCLE SPASMS [None]
  - MYOPATHY [None]
  - NEUROPATHY PERIPHERAL [None]
